FAERS Safety Report 24418317 (Version 5)
Quarter: 2025Q1

REPORT INFORMATION
  Report Type: Spontaneous
  Country: US (occurrence: US)
  Receive Date: 20241009
  Receipt Date: 20250320
  Transmission Date: 20250408
  Serious: Yes (Other)
  Sender: SANOFI AVENTIS
  Company Number: US-SA-2024SA288886

PATIENT
  Age: 58 Year
  Sex: Female

DRUGS (4)
  1. LANTUS SOLOSTAR [Suspect]
     Active Substance: INSULIN GLARGINE
     Indication: Type 1 diabetes mellitus
     Dosage: 18 IU, QD
     Route: 065
     Dates: start: 20210415
  2. LANTUS SOLOSTAR [Suspect]
     Active Substance: INSULIN GLARGINE
     Dosage: 20-50 UNITS^ HS AND DRUG TREATMENT DURATION:3.5 YEARS
     Route: 065
  3. LANTUS SOLOSTAR [Suspect]
     Active Substance: INSULIN GLARGINE
     Dosage: 22 DF, QD
  4. LANTUS SOLOSTAR [Suspect]
     Active Substance: INSULIN GLARGINE
     Dosage: BID
     Route: 058

REACTIONS (5)
  - Diabetes mellitus inadequate control [Unknown]
  - Hypertension [Unknown]
  - Viral infection [Recovering/Resolving]
  - Blood glucose increased [Unknown]
  - Off label use [Unknown]

NARRATIVE: CASE EVENT DATE: 20241014
